FAERS Safety Report 4764553-6 (Version None)
Quarter: 2005Q3

REPORT INFORMATION
  Report Type: 
  Country: None (occurrence: None)
  Receive Date: 20050906
  Receipt Date: 20050829
  Transmission Date: 20060218
  Serious: Yes (Life-Threatening, Hospitalization, Other)
  Sender: FDA-Public Use
  Company Number: 2005-03-1794

PATIENT
  Age: 56 Year
  Sex: Male
  Weight: 99.7913 kg

DRUGS (3)
  1. TEMODAR [Suspect]
     Indication: GLIOBLASTOMA MULTIFORME
     Dosage: 160 MG QD X5D ORAL
     Route: 048
     Dates: start: 20041130, end: 20050221
  2. RADIATION THERAPY NO DOSE FORM [Suspect]
     Indication: GLIOBLASTOMA MULTIFORME
     Dosage: X-RAY THERAPY
     Dates: end: 20050221
  3. VYTORIN [Concomitant]

REACTIONS (18)
  - ALOPECIA [None]
  - ANAEMIA [None]
  - APLASTIC ANAEMIA [None]
  - ARTHRALGIA [None]
  - CLOSTRIDIUM COLITIS [None]
  - DEEP VEIN THROMBOSIS [None]
  - DRUG INEFFECTIVE [None]
  - EPISTAXIS [None]
  - FATIGUE [None]
  - FEBRILE NEUTROPENIA [None]
  - HEADACHE [None]
  - HYPERLIPIDAEMIA [None]
  - PANCYTOPENIA [None]
  - PULMONARY EMBOLISM [None]
  - RADIATION INJURY [None]
  - RECTAL HAEMORRHAGE [None]
  - SEPSIS [None]
  - STAPHYLOCOCCAL ABSCESS [None]
